FAERS Safety Report 13133184 (Version 2)
Quarter: 2017Q1

REPORT INFORMATION
  Report Type: Spontaneous
  Country: CN (occurrence: CN)
  Receive Date: 20170120
  Receipt Date: 20170125
  Transmission Date: 20170428
  Serious: Yes (Hospitalization)
  Sender: FDA-Public Use
  Company Number: PHHY2016CN180209

PATIENT
  Age: 48 Year
  Sex: Male

DRUGS (1)
  1. TEGRETOL [Suspect]
     Active Substance: CARBAMAZEPINE
     Indication: EPILEPSY
     Dosage: 2 TO 3 TABLETS EVERY TIME (8 TO 9 TABLETS EVERY DAY TOTALLY), TID
     Route: 048
     Dates: start: 2008

REACTIONS (4)
  - Fall [Unknown]
  - Drug ineffective [Unknown]
  - Epilepsy [Unknown]
  - Skull fracture [Recovered/Resolved]

NARRATIVE: CASE EVENT DATE: 2016
